FAERS Safety Report 18605902 (Version 1)
Quarter: 2020Q4

REPORT INFORMATION
  Report Type: Spontaneous
  Country: CZ (occurrence: CZ)
  Receive Date: 20201211
  Receipt Date: 20201211
  Transmission Date: 20210114
  Serious: Yes (Hospitalization, Other)
  Sender: FDA-Public Use
  Company Number: CZ-SA-2020SA338309

PATIENT

DRUGS (4)
  1. HYPNOGEN [Suspect]
     Active Substance: ZOLPIDEM TARTRATE
  2. OXAZEPAM. [Suspect]
     Active Substance: OXAZEPAM
  3. IBALGIN [Suspect]
     Active Substance: IBUPROFEN
  4. STILNOX [Suspect]
     Active Substance: ZOLPIDEM TARTRATE

REACTIONS (10)
  - Anxiety [Recovering/Resolving]
  - Circadian rhythm sleep disorder [Recovering/Resolving]
  - Dizziness [Recovering/Resolving]
  - Pelvic fracture [Unknown]
  - Condition aggravated [Recovering/Resolving]
  - Intentional overdose [Unknown]
  - Drug abuse [Unknown]
  - Cognitive disorder [Recovering/Resolving]
  - Restlessness [Recovering/Resolving]
  - Fall [Unknown]
